FAERS Safety Report 4883787-3 (Version None)
Quarter: 2006Q1

REPORT INFORMATION
  Report Type: 
  Country: None (occurrence: None)
  Receive Date: 20060113
  Receipt Date: 20060105
  Transmission Date: 20060701
  Serious: Yes (Hospitalization)
  Sender: FDA-Public Use
  Company Number: TCI2006A00022

PATIENT
  Age: 72 Year
  Sex: Female

DRUGS (7)
  1. ACTOS [Suspect]
     Indication: DIABETES MELLITUS
     Dosage: 15 MG (15 MG, 1 D), PER ORAL
     Route: 048
     Dates: start: 20040101, end: 20051222
  2. NORVASC [Concomitant]
  3. LOSARTAN POTASSIUM [Concomitant]
  4. ALMARL (AROTINOLOL HYDROCHLORIDE) [Concomitant]
  5. ASPIRIN [Concomitant]
  6. DAONIL (GLIBENCLAMIDE) [Concomitant]
  7. PAMILCOM (GLIBENCLAMIDE) [Concomitant]

REACTIONS (5)
  - ALANINE AMINOTRANSFERASE INCREASED [None]
  - ASPARTATE AMINOTRANSFERASE INCREASED [None]
  - BLOOD LACTATE DEHYDROGENASE INCREASED [None]
  - HYPOAESTHESIA [None]
  - RHABDOMYOLYSIS [None]
